FAERS Safety Report 9157394 (Version 2)
Quarter: 2013Q1

REPORT INFORMATION
  Report Type: Spontaneous
  Country: US (occurrence: US)
  Receive Date: 20130312
  Receipt Date: 20130327
  Transmission Date: 20140127
  Serious: Yes (Life-Threatening, Hospitalization)
  Sender: FDA-Public Use
  Company Number: US-BAYER-2013-030003

PATIENT
  Sex: Male
  Weight: 90.7 kg

DRUGS (1)
  1. AVELOX [Suspect]
     Dosage: UNK

REACTIONS (5)
  - Anaphylactic reaction [None]
  - Rash [None]
  - Pruritus [None]
  - Chest discomfort [None]
  - Dyspnoea [None]
